FAERS Safety Report 9420033 (Version 1)
Quarter: 2013Q3

REPORT INFORMATION
  Report Type: Spontaneous
  Country: US (occurrence: None)
  Receive Date: 20130724
  Receipt Date: 20130724
  Transmission Date: 20140515
  Serious: Yes (Hospitalization)
  Sender: FDA-Public Use
  Company Number: None

PATIENT
  Age: 62 Year
  Sex: Male

DRUGS (5)
  1. LISINOPRIL 10MG [Suspect]
     Indication: HYPERTENSION
     Dosage: 10MG DAILY PO
     Route: 048
     Dates: end: 20130604
  2. FUROSEMIDE [Concomitant]
  3. LOSARTAN [Concomitant]
  4. OMEPRAZOLE [Concomitant]
  5. METOPROLOL [Concomitant]

REACTIONS (2)
  - Angioedema [None]
  - Treatment noncompliance [None]
